FAERS Safety Report 6262869-8 (Version None)
Quarter: 2009Q3

REPORT INFORMATION
  Report Type: 
  Country: None (occurrence: None)
  Receive Date: 20090709
  Receipt Date: 20090703
  Transmission Date: 20100115
  Serious: Yes (Other)
  Sender: FDA-Public Use
  Company Number: GB-AMGEN-US354445

PATIENT
  Age: 61 Year
  Sex: Female

DRUGS (7)
  1. ENBREL [Suspect]
     Indication: RHEUMATOID ARTHRITIS
     Route: 058
  2. DICLOFENAC DIETHYLAMINE [Concomitant]
     Indication: PAIN
  3. ACETAMINOPHEN [Concomitant]
  4. METHOTREXATE [Concomitant]
  5. OMEPRAZOLE [Concomitant]
  6. ADCAL D3 [Concomitant]
  7. FOLIC ACID [Concomitant]

REACTIONS (1)
  - PUSTULAR PSORIASIS [None]
